FAERS Safety Report 4909574-5 (Version None)
Quarter: 2006Q1

REPORT INFORMATION
  Report Type: 
  Country: None (occurrence: None)
  Receive Date: 20060213
  Receipt Date: 20050107
  Transmission Date: 20060701
  Serious: Yes (Death)
  Sender: FDA-Public Use
  Company Number: US-MERCK-0501USA02300

PATIENT
  Age: 45 Year
  Sex: Male

DRUGS (1)
  1. VIOXX [Suspect]
     Route: 048
     Dates: start: 20000101, end: 20040101

REACTIONS (21)
  - ASTHENIA [None]
  - ASTHMA [None]
  - CHEST PAIN [None]
  - CHILLS [None]
  - CHRONIC SINUSITIS [None]
  - DIABETES MELLITUS NON-INSULIN-DEPENDENT [None]
  - DIZZINESS [None]
  - DYSPNOEA [None]
  - FATIGUE [None]
  - HEADACHE [None]
  - HYPOGLYCAEMIA [None]
  - LABORATORY TEST ABNORMAL [None]
  - MALAISE [None]
  - MYOCARDIAL INFARCTION [None]
  - NASAL POLYPS [None]
  - NASAL TURBINATE HYPERTROPHY [None]
  - NAUSEA [None]
  - POLLAKIURIA [None]
  - PYREXIA [None]
  - THROMBOSIS [None]
  - VOMITING [None]
